FAERS Safety Report 8452298-0 (Version None)
Quarter: 2012Q2

REPORT INFORMATION
  Report Type: 
  Country: None (occurrence: None)
  Receive Date: 20120620
  Receipt Date: 20120507
  Transmission Date: 20120825
  Serious: No
  Sender: FDA-Public Use
  Company Number: US-VERTEX PHARMACEUTICALS INC.-AE-2012-004917

PATIENT
  Sex: Male
  Weight: 83.99 kg

DRUGS (5)
  1. INCIVEK [Suspect]
     Indication: HEPATITIS C
     Route: 048
     Dates: start: 20120316
  2. OXYCODONE HCL [Concomitant]
     Indication: BREAKTHROUGH PAIN
     Route: 048
  3. PEGASYS [Concomitant]
     Indication: HEPATITIS C
     Route: 058
     Dates: start: 20120316
  4. OPANA ER [Concomitant]
     Indication: PAIN
     Route: 048
  5. RIBAVIRIN [Concomitant]
     Indication: HEPATITIS C
     Route: 048
     Dates: start: 20120316

REACTIONS (4)
  - MUSCULAR WEAKNESS [None]
  - CRYING [None]
  - ANXIETY [None]
  - NAUSEA [None]
